FAERS Safety Report 24140350 (Version 1)
Quarter: 2024Q3

REPORT INFORMATION
  Report Type: Spontaneous
  Country: US (occurrence: US)
  Receive Date: 20240726
  Receipt Date: 20240726
  Transmission Date: 20241017
  Serious: No
  Sender: NOVARTIS
  Company Number: US-002147023-NVSC2024US152778

PATIENT
  Sex: Male

DRUGS (1)
  1. ENTRESTO [Suspect]
     Active Substance: SACUBITRIL\VALSARTAN
     Indication: Product used for unknown indication
     Dosage: UNK (ONE TO TWO YEARS)
     Route: 065

REACTIONS (4)
  - Cardiac valve disease [Unknown]
  - Visual impairment [Unknown]
  - Reflexes abnormal [Unknown]
  - Product dose omission issue [Unknown]
